FAERS Safety Report 20534548 (Version 2)
Quarter: 2022Q1

REPORT INFORMATION
  Report Type: Report from Study
  Country: FR (occurrence: None)
  Receive Date: 20220302
  Receipt Date: 20220307
  Transmission Date: 20220423
  Serious: Yes (Hospitalization)
  Sender: FDA-Public Use
  Company Number: FR-ROCHE-3032188

PATIENT
  Age: 61 Year
  Sex: Male
  Weight: 102.5 kg

DRUGS (2)
  1. ENTRECTINIB [Suspect]
     Active Substance: ENTRECTINIB
     Indication: Neoplasm
     Dosage: ON 16/FEB/2022, LAST DOSE WAS RECEIVED PRIOR TO THE EVENT
     Route: 048
     Dates: start: 20220104
  2. ENTRECTINIB [Suspect]
     Active Substance: ENTRECTINIB
     Dosage: SECOND LINE TREATMENT
     Route: 048
     Dates: start: 20220105

REACTIONS (1)
  - Urinary retention [Not Recovered/Not Resolved]

NARRATIVE: CASE EVENT DATE: 20220216
